FAERS Safety Report 13740845 (Version 1)
Quarter: 2017Q3

REPORT INFORMATION
  Report Type: Spontaneous
  Country: US (occurrence: US)
  Receive Date: 20170711
  Receipt Date: 20170711
  Transmission Date: 20171127
  Serious: No
  Sender: FDA-Public Use
  Company Number: US-EMD SERONO-8168074

PATIENT
  Age: 48 Year
  Sex: Female

DRUGS (1)
  1. REBIF [Suspect]
     Active Substance: INTERFERON BETA-1A
     Indication: MULTIPLE SCLEROSIS
     Route: 058

REACTIONS (4)
  - Herpes zoster [Unknown]
  - Pain in extremity [Unknown]
  - Paraesthesia [Unknown]
  - Skin disorder [Unknown]

NARRATIVE: CASE EVENT DATE: 20170705
